FAERS Safety Report 4801373-8 (Version None)
Quarter: 2005Q4

REPORT INFORMATION
  Report Type: 
  Country: None (occurrence: None)
  Receive Date: 20051012
  Receipt Date: 20051004
  Transmission Date: 20060501
  Serious: No
  Sender: FDA-Public Use
  Company Number: RS005522-F

PATIENT
  Sex: Male

DRUGS (1)
  1. RABEPRAZOLE SODIUM [Suspect]
     Dosage: ORAL
     Route: 048

REACTIONS (1)
  - ERYTHEMA NODOSUM [None]
